FAERS Safety Report 5159178-7 (Version None)
Quarter: 2006Q4

REPORT INFORMATION
  Report Type: 
  Country: None (occurrence: None)
  Receive Date: 20061120
  Receipt Date: 20061107
  Transmission Date: 20070319
  Serious: Yes (Hospitalization)
  Sender: FDA-Public Use
  Company Number: DE-GUERBET-20060042

PATIENT
  Age: 43 Year
  Sex: Female

DRUGS (1)
  1. DOTAREM: / MEGLUMINE GADOTERATE [Suspect]
     Indication: NUCLEAR MAGNETIC RESONANCE IMAGING BRAIN
     Dosage: DOSAGE:  15, ML MILLILITRE (S), 1, ?, TOTAL INTRAVENOUS
     Route: 042
     Dates: start: 20060926, end: 20060926

REACTIONS (3)
  - ASTHMA [None]
  - NAUSEA [None]
  - VOMITING [None]
